FAERS Safety Report 6862828-8 (Version None)
Quarter: 2010Q3

REPORT INFORMATION
  Report Type: 
  Country: None (occurrence: None)
  Receive Date: 20100721
  Receipt Date: 20100713
  Transmission Date: 20110219
  Serious: Yes (Hospitalization)
  Sender: FDA-Public Use
  Company Number: A0864063B

PATIENT
  Age: 58 Year
  Sex: Female
  Weight: 50.9 kg

DRUGS (12)
  1. TOPOTECAN [Suspect]
     Indication: GLIOBLASTOMA
     Dates: start: 20100505
  2. AVASTIN [Suspect]
     Indication: GLIOBLASTOMA
     Dosage: 509MG EVERY TWO WEEKS
     Route: 042
     Dates: start: 20100222
  3. TEMODAR [Suspect]
     Indication: GLIOBLASTOMA
     Dosage: 300MG PER DAY
     Route: 048
     Dates: start: 20100222
  4. RADIATION [Suspect]
     Indication: GLIOBLASTOMA
     Dates: start: 20100222
  5. ZOFRAN [Concomitant]
  6. PROTONIX [Concomitant]
     Dosage: 40MG PER DAY
     Route: 048
  7. MIRALAX [Concomitant]
  8. MULTI-VITAMIN [Concomitant]
  9. MEDROL [Concomitant]
  10. PREDNISONE [Concomitant]
     Dosage: 10MG TWICE PER DAY
  11. PEPCID [Concomitant]
     Dosage: 20MG TWICE PER DAY
     Route: 048
  12. HYDROXYZINE [Concomitant]
     Dosage: 25MG THREE TIMES PER DAY

REACTIONS (7)
  - ACUTE RESPIRATORY DISTRESS SYNDROME [None]
  - CEREBROVASCULAR ACCIDENT [None]
  - CONVULSION [None]
  - ENCEPHALOPATHY [None]
  - PNEUMONIA ASPIRATION [None]
  - PNEUMOTHORAX TRAUMATIC [None]
  - SEPTIC SHOCK [None]
